FAERS Safety Report 18954494 (Version 1)
Quarter: 2021Q1

REPORT INFORMATION
  Report Type: Spontaneous
  Country: CN (occurrence: CN)
  Receive Date: 20210301
  Receipt Date: 20210301
  Transmission Date: 20210420
  Serious: Yes (Hospitalization, Other)
  Sender: FDA-Public Use
  Company Number: CN-BAXTER-2021BAX003925

PATIENT
  Age: 30 Year
  Sex: Female
  Weight: 46 kg

DRUGS (7)
  1. ENDOXAN [Suspect]
     Active Substance: CYCLOPHOSPHAMIDE
     Indication: B-CELL LYMPHOMA
     Dosage: DAY 1?NS 100ML + CYCLOPHOSPHAMIDE 1G
     Route: 041
     Dates: start: 20210117, end: 20210119
  2. 0.9% SODIUM CHLORIDE INJECTION [Suspect]
     Active Substance: SODIUM CHLORIDE
     Dosage: DAY 1?NS 100ML + CYCLOPHOSPHAMIDE 1G IVGTT
     Route: 041
     Dates: start: 20210117, end: 20210117
  3. 0.9% SODIUM CHLORIDE INJECTION [Suspect]
     Active Substance: SODIUM CHLORIDE
     Indication: MEDICATION DILUTION
     Dosage: DAY 0?NS 600ML + RITUXIMAB 600 MG IVGTT
     Route: 041
     Dates: start: 20210116, end: 20210116
  4. PIRARUBICIN [Suspect]
     Active Substance: PIRARUBICIN
     Indication: B-CELL LYMPHOMA
     Dosage: DAY 1?5% GS 100ML + PIRARUBICIN 70 MG IVGTT
     Route: 041
     Dates: start: 20210117, end: 20210117
  5. MABTHERA [Suspect]
     Active Substance: RITUXIMAB
     Indication: B-CELL LYMPHOMA
     Dosage: DAY 0?NS 600ML + RITUXIMAB 600 MG IVGTT
     Route: 041
     Dates: start: 20210116, end: 20210116
  6. VINCRISTINE SULFATE. [Suspect]
     Active Substance: VINCRISTINE SULFATE
     Indication: B-CELL LYMPHOMA
     Route: 042
     Dates: start: 20210117, end: 20210117
  7. 5% GLUCOSE  INJECTION [Suspect]
     Active Substance: DEXTROSE
     Indication: MEDICATION DILUTION
     Dosage: DAY 1?5% GS 100ML + PIRARUBICIN 70 MG IVGTT
     Route: 041
     Dates: start: 20210117, end: 20210117

REACTIONS (2)
  - Leukopenia [Recovering/Resolving]
  - Myelosuppression [Recovering/Resolving]

NARRATIVE: CASE EVENT DATE: 20210219
